FAERS Safety Report 21783466 (Version 1)
Quarter: 2022Q4

REPORT INFORMATION
  Report Type: Spontaneous
  Country: None (occurrence: FR)
  Receive Date: 20221227
  Receipt Date: 20221227
  Transmission Date: 20230113
  Serious: Yes (Hospitalization)
  Sender: FDA-Public Use
  Company Number: FR-Nova Laboratories Limited-2136197

PATIENT
  Age: 24 Month
  Sex: Male
  Weight: 13 kg

DRUGS (10)
  1. PURIXAN [Suspect]
     Active Substance: MERCAPTOPURINE
     Indication: Acute leukaemia
     Route: 048
     Dates: start: 20220915, end: 20220922
  2. VINCRISTINE SULFATE [Suspect]
     Active Substance: VINCRISTINE SULFATE
     Route: 042
     Dates: start: 20220915, end: 20220915
  3. METHOTREXATE [Suspect]
     Active Substance: METHOTREXATE
     Route: 037
     Dates: start: 20220916, end: 20220916
  4. ONDANSETRON [Concomitant]
     Active Substance: ONDANSETRON
  5. ZYMAD (COLECALCIFEROL) [Concomitant]
  6. NYSTATIN [Concomitant]
     Active Substance: NYSTATIN
  7. GABAPENTIN [Concomitant]
     Active Substance: GABAPENTIN
  8. DEXAMETHASONE [Concomitant]
     Active Substance: DEXAMETHASONE
  9. BACTRIM [Concomitant]
     Active Substance: SULFAMETHOXAZOLE\TRIMETHOPRIM
  10. POLYETHYLENE GLYCOLS [Concomitant]
     Active Substance: POLYETHYLENE GLYCOLS

REACTIONS (3)
  - Cell death [Recovering/Resolving]
  - Haemolytic anaemia [Recovering/Resolving]
  - Cholestasis [Recovering/Resolving]

NARRATIVE: CASE EVENT DATE: 20220922
